FAERS Safety Report 11180590 (Version 1)
Quarter: 2015Q2

REPORT INFORMATION
  Report Type: Spontaneous
  Country: US (occurrence: US)
  Receive Date: 20150611
  Receipt Date: 20150611
  Transmission Date: 20150821
  Serious: No
  Sender: FDA-Public Use
  Company Number: US-PFIZER INC-2015194171

PATIENT
  Age: 57 Year
  Sex: Male
  Weight: 101 kg

DRUGS (1)
  1. NICOTROL [Suspect]
     Active Substance: NICOTINE
     Indication: SMOKING CESSATION THERAPY
     Dosage: 10 MG, UNK
     Dates: start: 201106, end: 2011

REACTIONS (3)
  - Drug ineffective [Unknown]
  - Red blood cell count increased [Not Recovered/Not Resolved]
  - Blood carbon monoxide increased [Not Recovered/Not Resolved]

NARRATIVE: CASE EVENT DATE: 2011
